FAERS Safety Report 25862060 (Version 1)
Quarter: 2025Q3

REPORT INFORMATION
  Report Type: Spontaneous
  Country: US (occurrence: US)
  Receive Date: 20250930
  Receipt Date: 20250930
  Transmission Date: 20251021
  Serious: Yes (Death)
  Sender: TEVA
  Company Number: US-TEVA-VS-3376411

PATIENT
  Age: 77 Year
  Sex: Female
  Weight: 78.3 kg

DRUGS (1)
  1. AUSTEDO XR [Suspect]
     Active Substance: DEUTETRABENAZINE
     Indication: Tardive dyskinesia
     Route: 048

REACTIONS (1)
  - Death [Fatal]
